FAERS Safety Report 12612228 (Version 1)
Quarter: 2016Q3

REPORT INFORMATION
  Report Type: Spontaneous
  Country: FR (occurrence: FR)
  Receive Date: 20160801
  Receipt Date: 20160801
  Transmission Date: 20161109
  Serious: Yes (Other)
  Sender: FDA-Public Use
  Company Number: ALCN2016FR005174

PATIENT
  Age: 6 Year
  Sex: Male
  Weight: 18 kg

DRUGS (1)
  1. CYCLOPENTOLATE HCL [Suspect]
     Active Substance: CYCLOPENTOLATE HYDROCHLORIDE
     Indication: MYDRIASIS
     Dosage: 2 GTT, TID
     Route: 047
     Dates: start: 20160622, end: 20160622

REACTIONS (4)
  - Nightmare [Recovered/Resolved]
  - Sleep terror [Recovered/Resolved]
  - Sleep disorder [Recovered/Resolved]
  - Delirium [Recovered/Resolved]

NARRATIVE: CASE EVENT DATE: 20160622
